FAERS Safety Report 9672238 (Version 1)
Quarter: 2013Q4

REPORT INFORMATION
  Report Type: Spontaneous
  Country: CN (occurrence: None)
  Receive Date: 20131105
  Receipt Date: 20131105
  Transmission Date: 20140711
  Serious: Yes (Death, Other)
  Sender: FDA-Public Use
  Company Number: FK201304811

PATIENT
  Age: 59 Year
  Sex: Male

DRUGS (6)
  1. IFOSFAMIDE [Suspect]
     Indication: ANGIOSARCOMA
     Dosage: DAYS 1-4
     Route: 042
     Dates: start: 20101105
  2. EPIRUBICIN [Suspect]
     Indication: ANGIOSARCOMA
     Route: 042
     Dates: start: 20101105
  3. BEVACIZUMAB [Suspect]
     Indication: ANGIOSARCOMA
     Dosage: DAY 1 REPEATED EVERY 2
     Dates: start: 20101105
  4. MESNA (MESNA) [Concomitant]
  5. PLACITAXEL (PLACITAXEL) [Concomitant]
  6. CISPLATIN (CISPLATIN) [Concomitant]

REACTIONS (2)
  - Pulmonary embolism [None]
  - Bone marrow failure [None]
